FAERS Safety Report 9776802 (Version 3)
Quarter: 2014Q2

REPORT INFORMATION
  Report Type: Report from Study
  Country: BE (occurrence: BE)
  Receive Date: 20131220
  Receipt Date: 20140425
  Transmission Date: 20141212
  Serious: Yes (Hospitalization)
  Sender: FDA-Public Use
  Company Number: BE-ASTRAZENECA-2013SE90708

PATIENT
  Age: 57 Year
  Sex: Male

DRUGS (5)
  1. TICAGRELOR [Suspect]
     Indication: PERCUTANEOUS CORONARY INTERVENTION
     Route: 048
     Dates: start: 20131115, end: 20131116
  2. ASPIRIN (NON-AZ PRODUCT) [Suspect]
     Indication: ANTICOAGULANT THERAPY
     Route: 048
     Dates: start: 20131115
  3. GLUCOPHAGE [Concomitant]
     Indication: DIABETES MELLITUS
  4. CURMAC [Concomitant]
     Indication: ASTHENIA
  5. PIROXICAM [Concomitant]
     Indication: ANALGESIC THERAPY

REACTIONS (7)
  - Ataxia [Recovered/Resolved]
  - Pyrexia [Recovered/Resolved]
  - Vasculitis [Recovered/Resolved]
  - Encephalitis [Recovered/Resolved]
  - Cerebral amyloid angiopathy [Recovered/Resolved]
  - Drug ineffective [Recovered/Resolved]
  - Hemianopia [Recovered/Resolved]
